FAERS Safety Report 17468710 (Version 1)
Quarter: 2020Q1

REPORT INFORMATION
  Report Type: Spontaneous
  Country: US (occurrence: US)
  Receive Date: 20200217
  Receipt Date: 20200217
  Transmission Date: 20200409
  Serious: Yes (Other)
  Sender: FDA-Public Use
  Company Number: None

PATIENT
  Age: 66 Year
  Sex: Male
  Weight: 88 kg

DRUGS (1)
  1. ATORVASTATIN 40MG [Suspect]
     Active Substance: ATORVASTATIN
     Indication: CORONARY ARTERY DISEASE
     Route: 048
     Dates: start: 20190226, end: 20200115

REACTIONS (3)
  - Gynaecomastia [None]
  - Breast mass [None]
  - Breast pain [None]

NARRATIVE: CASE EVENT DATE: 20190916
